FAERS Safety Report 18233007 (Version 3)
Quarter: 2020Q3

REPORT INFORMATION
  Report Type: Spontaneous
  Country: CN (occurrence: CN)
  Receive Date: 20200904
  Receipt Date: 20200917
  Transmission Date: 20201103
  Serious: Yes (Other)
  Sender: FDA-Public Use
  Company Number: CN-ASTRAZENECA-2020SF12695

PATIENT
  Age: 60 Year
  Sex: Male
  Weight: 90 kg

DRUGS (3)
  1. ZOLEDRONIC ACID [Concomitant]
     Active Substance: ZOLEDRONIC ACID
     Indication: RESORPTION BONE INCREASED
     Dosage: ONE DRIP A MONTH FOR ONE YEAR
     Route: 041
  2. IMFINZI [Suspect]
     Active Substance: DURVALUMAB
     Indication: NON-SMALL CELL LUNG CANCER
     Dosage: ONE DRIP EVERY 21 DAYS
     Route: 041
  3. IMFINZI [Suspect]
     Active Substance: DURVALUMAB
     Indication: NON-SMALL CELL LUNG CANCER
     Dosage: 500MG/10ML, HAD BEEN TREATED FOR 3 PERIODS. THE LAST DOSE WAS 1500MG/PERIOD;
     Route: 041
     Dates: start: 20200218, end: 20200424

REACTIONS (5)
  - Drug resistance [Unknown]
  - Gait inability [Unknown]
  - Depressed level of consciousness [Unknown]
  - Metastases to central nervous system [Unknown]
  - Lethargy [Unknown]
